FAERS Safety Report 17399698 (Version 1)
Quarter: 2020Q1

REPORT INFORMATION
  Report Type: Spontaneous
  Country: US (occurrence: US)
  Receive Date: 20200124
  Receipt Date: 20200124
  Transmission Date: 20200409
  Serious: Yes (Life-Threatening, Hospitalization)
  Sender: FDA-Public Use
  Company Number: None

PATIENT
  Age: 74 Year
  Sex: Male

DRUGS (1)
  1. AMOXICILLIN/CLAVULANATE (AMOXICILLIN TRIHYDRATE 875MG/CLAVULANATE K 12 [Suspect]
     Active Substance: AMOXICILLIN\CLAVULANATE POTASSIUM
     Dosage: ?          OTHER DOSE:1 UNITS;?
     Route: 048
     Dates: start: 20190822, end: 20190909

REACTIONS (6)
  - Cough [None]
  - Pneumonia [None]
  - Asthma [None]
  - Eosinophilia [None]
  - Wheezing [None]
  - Respiratory depression [None]

NARRATIVE: CASE EVENT DATE: 20190909
